FAERS Safety Report 11446401 (Version 1)
Quarter: 2015Q3

REPORT INFORMATION
  Report Type: Spontaneous
  Country: US (occurrence: US)
  Receive Date: 20150902
  Receipt Date: 20150902
  Transmission Date: 20151125
  Serious: No
  Sender: FDA-Public Use
  Company Number: ALCN2014US003861

PATIENT
  Age: 73 Year
  Sex: Female

DRUGS (1)
  1. PREDNISOLONE ACETATE. [Suspect]
     Active Substance: PREDNISOLONE ACETATE
     Dosage: UNK GTT, UNK
     Route: 047

REACTIONS (3)
  - Vision blurred [Unknown]
  - Eye irritation [Unknown]
  - Eye pain [Unknown]

NARRATIVE: CASE EVENT DATE: 20140628
